FAERS Safety Report 20247770 (Version 9)
Quarter: 2023Q2

REPORT INFORMATION
  Report Type: Spontaneous
  Country: US (occurrence: US)
  Receive Date: 20211229
  Receipt Date: 20230424
  Transmission Date: 20230722
  Serious: No
  Sender: FDA-Public Use
  Company Number: US-SA-SAC20211227000664

PATIENT
  Age: 55 Year
  Sex: Female

DRUGS (4)
  1. DUPIXENT [Suspect]
     Active Substance: DUPILUMAB
     Indication: Dermatitis atopic
     Dosage: 600 MG, 1X
     Route: 058
     Dates: start: 202109, end: 202109
  2. DUPIXENT [Suspect]
     Active Substance: DUPILUMAB
     Dosage: 300 MG, QOW
     Route: 058
  3. PROAIR RESPICLICK [Concomitant]
     Active Substance: ALBUTEROL SULFATE
     Dosage: UNK
  4. VITAMIN B2 [Concomitant]
     Active Substance: RIBOFLAVIN
     Dosage: UNK

REACTIONS (13)
  - Eye pain [Unknown]
  - Limb injury [Unknown]
  - Urinary tract infection [Unknown]
  - Skin injury [Recovering/Resolving]
  - Emphysema [Unknown]
  - Dyspnoea [Unknown]
  - Skin exfoliation [Unknown]
  - Hypersensitivity [Not Recovered/Not Resolved]
  - Dry eye [Unknown]
  - Dermatitis atopic [Unknown]
  - Eye irritation [Unknown]
  - Eczema [Unknown]
  - Drug ineffective [Unknown]
